FAERS Safety Report 16524073 (Version 7)
Quarter: 2019Q4

REPORT INFORMATION
  Report Type: Spontaneous
  Country: US (occurrence: US)
  Receive Date: 20190702
  Receipt Date: 20191219
  Transmission Date: 20200122
  Serious: Yes (Life-Threatening, Hospitalization)
  Sender: FDA-Public Use
  Company Number: US-ACTELION-A-US2019-192536

PATIENT
  Age: 2 Year
  Sex: Female

DRUGS (4)
  1. TRACLEER [Suspect]
     Active Substance: BOSENTAN
     Indication: PULMONARY HYPERTENSION
     Dosage: 16 MG, BID
     Route: 048
     Dates: start: 20180608, end: 201806
  2. TRACLEER [Suspect]
     Active Substance: BOSENTAN
     Dosage: 32 MG
     Route: 048
     Dates: start: 20191126, end: 2019
  3. SILDENAFIL. [Concomitant]
     Active Substance: SILDENAFIL
     Dosage: 10 MG, TID
     Route: 048
  4. SILDENAFIL. [Concomitant]
     Active Substance: SILDENAFIL
     Dosage: 10 MG, Q6HRS
     Dates: start: 20180427

REACTIONS (8)
  - Acute respiratory distress syndrome [Recovering/Resolving]
  - Oxygen saturation decreased [Unknown]
  - Cardio-respiratory arrest [Recovering/Resolving]
  - Malaise [Recovering/Resolving]
  - Product dose omission [Recovered/Resolved]
  - Pulmonary hypertension [Unknown]
  - Lung assist device therapy [Recovering/Resolving]
  - Brain injury [Unknown]

NARRATIVE: CASE EVENT DATE: 20190521
